FAERS Safety Report 18804523 (Version 1)
Quarter: 2021Q1

REPORT INFORMATION
  Report Type: Spontaneous
  Country: US (occurrence: US)
  Receive Date: 20210128
  Receipt Date: 20210128
  Transmission Date: 20210419
  Serious: No
  Sender: FDA-Public Use
  Company Number: US-B.I. PHARMACEUTICALS,INC./RIDGEFIELD-2021-BI-078648

PATIENT

DRUGS (4)
  1. MELOXICAM. [Suspect]
     Active Substance: MELOXICAM
     Indication: INFLAMMATION
  2. MELOXICAM. [Suspect]
     Active Substance: MELOXICAM
     Indication: ADVERSE DRUG REACTION
  3. MELOXICAM. [Suspect]
     Active Substance: MELOXICAM
     Indication: ARTHRITIS
  4. MELOXICAM. [Suspect]
     Active Substance: MELOXICAM
     Indication: INFECTION

REACTIONS (2)
  - COVID-19 [Unknown]
  - Infection susceptibility increased [Unknown]
